FAERS Safety Report 21289836 (Version 1)
Quarter: 2022Q3

REPORT INFORMATION
  Report Type: Spontaneous
  Country: US (occurrence: US)
  Receive Date: 20220902
  Receipt Date: 20220902
  Transmission Date: 20221027
  Serious: No
  Sender: FDA-Public Use
  Company Number: US-BRISTOL-MYERS SQUIBB COMPANY-2022-099966

PATIENT
  Age: 78 Year
  Sex: Male
  Weight: 132.19 kg

DRUGS (1)
  1. REVLIMID [Suspect]
     Active Substance: LENALIDOMIDE
     Indication: Plasma cell myeloma
     Dosage: FREQUENCY:  1-14, EVERY 21 DAYS
     Route: 048
     Dates: start: 20211230

REACTIONS (2)
  - Blood potassium decreased [Unknown]
  - Off label use [Unknown]
